FAERS Safety Report 9005617 (Version 3)
Quarter: 2013Q4

REPORT INFORMATION
  Report Type: Spontaneous
  Country: US (occurrence: US)
  Receive Date: 20130109
  Receipt Date: 20131119
  Transmission Date: 20140711
  Serious: Yes (Hospitalization, Other)
  Sender: FDA-Public Use
  Company Number: US-009507513-1301USA002299

PATIENT
  Sex: Female

DRUGS (3)
  1. FOSAMAX [Suspect]
     Indication: OSTEOPOROSIS
     Dosage: UNK
     Route: 048
     Dates: start: 2002, end: 2004
  2. CALCIUM (UNSPECIFIED) [Concomitant]
     Dosage: UNK
     Dates: start: 1999
  3. CHOLECALCIFEROL [Concomitant]
     Dosage: UNK
     Dates: start: 1999

REACTIONS (15)
  - Femur fracture [Unknown]
  - Intramedullary rod insertion [Unknown]
  - Skin cancer [Unknown]
  - Surgery [Unknown]
  - Plasma cell myeloma [Unknown]
  - Depression [Unknown]
  - Anxiety [Unknown]
  - Impaired healing [Unknown]
  - Trigger finger [Unknown]
  - Foot fracture [Unknown]
  - Pubis fracture [Recovered/Resolved]
  - Hypothyroidism [Unknown]
  - Hypertension [Unknown]
  - Hypercholesterolaemia [Unknown]
  - Hysterectomy [Unknown]
